FAERS Safety Report 9543337 (Version 1)
Quarter: 2013Q3

REPORT INFORMATION
  Report Type: Spontaneous
  Country: SI (occurrence: SI)
  Receive Date: 20130923
  Receipt Date: 20130923
  Transmission Date: 20140515
  Serious: Yes (Other)
  Sender: FDA-Public Use
  Company Number: SI-PFIZER INC-2013269619

PATIENT
  Sex: Male

DRUGS (1)
  1. EFECTIN ER [Suspect]

REACTIONS (1)
  - Drug abuser [Unknown]
